FAERS Safety Report 13007017 (Version 2)
Quarter: 2017Q1

REPORT INFORMATION
  Report Type: Report from Study
  Country: CA (occurrence: CA)
  Receive Date: 20161207
  Receipt Date: 20170201
  Transmission Date: 20170428
  Serious: Yes (Other)
  Sender: FDA-Public Use
  Company Number: CA-JNJFOC-20161203764

PATIENT
  Age: 42 Year
  Sex: Female
  Weight: 62.2 kg

DRUGS (3)
  1. REMICADE [Suspect]
     Active Substance: INFLIXIMAB
     Indication: CROHN^S DISEASE
     Route: 042
  2. ENTOCORT [Concomitant]
     Active Substance: BUDESONIDE
     Route: 065
  3. REMICADE [Suspect]
     Active Substance: INFLIXIMAB
     Indication: CROHN^S DISEASE
     Route: 042
     Dates: start: 20161130

REACTIONS (5)
  - Constipation [Unknown]
  - Ulcer [Unknown]
  - Abdominal pain [Unknown]
  - Ileal stenosis [Unknown]
  - Scar [Unknown]

NARRATIVE: CASE EVENT DATE: 20161129
